FAERS Safety Report 8944277 (Version 1)
Quarter: 2012Q4

REPORT INFORMATION
  Report Type: 
  Country: US (occurrence: US)
  Receive Date: 20121204
  Receipt Date: 20121204
  Transmission Date: 20130627
  Serious: No
  Sender: FDA-Public Use
  Company Number: US-AMGEN-USASP2012065861

PATIENT
  Age: 67 None
  Sex: Female

DRUGS (1)
  1. ENBREL [Suspect]
     Indication: RHEUMATOID ARTHRITIS
     Dosage: 50 mg, qwk
     Dates: start: 20090914

REACTIONS (4)
  - Impaired healing [Not Recovered/Not Resolved]
  - Cyst [Not Recovered/Not Resolved]
  - Fall [Recovered/Resolved]
  - Excoriation [Recovered/Resolved]
